FAERS Safety Report 7411599-5 (Version None)
Quarter: 2011Q2

REPORT INFORMATION
  Report Type: 
  Country: None (occurrence: None)
  Receive Date: 20110413
  Receipt Date: 20100920
  Transmission Date: 20111010
  Serious: Yes (Hospitalization)
  Sender: FDA-Public Use
  Company Number: US-BRISTOL-MYERS SQUIBB COMPANY-15297195

PATIENT
  Age: 6 Decade
  Sex: Male

DRUGS (3)
  1. STEROIDS [Concomitant]
  2. ERBITUX [Suspect]
     Indication: COLORECTAL CANCER
     Dosage: 10 CC ON 13SEP2010.
  3. BENADRYL [Concomitant]

REACTIONS (1)
  - HYPERSENSITIVITY [None]
